FAERS Safety Report 4629705-4 (Version None)
Quarter: 2005Q2

REPORT INFORMATION
  Report Type: 
  Country: None (occurrence: None)
  Receive Date: 20050407
  Receipt Date: 20050322
  Transmission Date: 20051028
  Serious: Yes (Hospitalization)
  Sender: FDA-Public Use
  Company Number: FR_050306099

PATIENT
  Age: 70 Year
  Sex: Female

DRUGS (1)
  1. FORTEO [Suspect]
     Indication: OSTEOPOROSIS
     Dosage: 20 UG/1 DAY
     Dates: start: 20050308, end: 20050320

REACTIONS (4)
  - AREFLEXIA [None]
  - HYPERCALCAEMIA [None]
  - MUSCULAR WEAKNESS [None]
  - POLYNEUROPATHY [None]
